FAERS Safety Report 5546790-6 (Version None)
Quarter: 2007Q4

REPORT INFORMATION
  Report Type: 
  Country: None (occurrence: None)
  Receive Date: 20071206
  Receipt Date: 20071114
  Transmission Date: 20080405
  Serious: Yes (Hospitalization)
  Sender: FDA-Public Use
  Company Number: 2007EU001067

PATIENT
  Age: 51 Year
  Sex: Male
  Weight: 65 kg

DRUGS (8)
  1. TACROLIMUS [Suspect]
     Indication: RENAL TRANSPLANT
     Dosage: 4.5 MG, D, ORAL, 8 MG, D, ORAL, 5 MG, D, ORAL, 4 MG, D, ORAL
     Route: 048
     Dates: end: 20070913
  2. TACROLIMUS [Suspect]
     Indication: RENAL TRANSPLANT
     Dosage: 4.5 MG, D, ORAL, 8 MG, D, ORAL, 5 MG, D, ORAL, 4 MG, D, ORAL
     Route: 048
     Dates: start: 20070107
  3. EVEROLIMUS(EVEROLIMUS) [Suspect]
     Indication: RENAL TRANSPLANT
     Dosage: 1.5MG, D, ORAL
     Route: 048
     Dates: start: 20070108, end: 20070913
  4. INSULIN (INSULIN) [Concomitant]
  5. ACETAMINOPHEN [Concomitant]
  6. FOSFOMYCIN (FOSFOMYCIN) [Concomitant]
  7. MEROPENEM (MEROPENEM) [Concomitant]
  8. AROSYN COMPRIMIDOS DISPERSABLES (AMOXICILLIN / CLAVULANIC ACID) TABLET [Concomitant]

REACTIONS (6)
  - BLOOD CREATININE INCREASED [None]
  - DISEASE RECURRENCE [None]
  - DYSURIA [None]
  - ESCHERICHIA URINARY TRACT INFECTION [None]
  - PROSTATITIS [None]
  - PYELONEPHRITIS [None]
